FAERS Safety Report 15347927 (Version 1)
Quarter: 2018Q3

REPORT INFORMATION
  Report Type: Spontaneous
  Country: AT (occurrence: AT)
  Receive Date: 20180904
  Receipt Date: 20180904
  Transmission Date: 20181010
  Serious: Yes (Other)
  Sender: FDA-Public Use
  Company Number: AT-AMGEN-AUTSP2018121501

PATIENT
  Age: 59 Year
  Sex: Female

DRUGS (3)
  1. PARSABIV [Concomitant]
     Active Substance: ETELCALCETIDE HYDROCHLORIDE
     Indication: PRODUCT USED FOR UNKNOWN INDICATION
     Dosage: 90 MG/DIALYSIS SESSION, UNK
     Route: 065
     Dates: start: 2018
  2. MIMPARA [Suspect]
     Active Substance: CINACALCET HYDROCHLORIDE
     Indication: BLOOD PARATHYROID HORMONE INCREASED
     Dosage: 90 MG, QD
     Route: 065
     Dates: start: 2011, end: 2018
  3. PARICALCITOL. [Concomitant]
     Active Substance: PARICALCITOL
     Indication: BLOOD PARATHYROID HORMONE INCREASED
     Dosage: 15 MUG, QWK
     Dates: start: 2011

REACTIONS (5)
  - Ulna fracture [Unknown]
  - Parathyroidectomy [Unknown]
  - Bone pain [Recovering/Resolving]
  - Fall [Unknown]
  - Blood phosphorus increased [Unknown]

NARRATIVE: CASE EVENT DATE: 201803
